FAERS Safety Report 5769849-7 (Version None)
Quarter: 2008Q2

REPORT INFORMATION
  Report Type: 
  Country: None (occurrence: None)
  Receive Date: 20080613
  Receipt Date: 20080411
  Transmission Date: 20081010
  Serious: No
  Sender: FDA-Public Use
  Company Number: US-ABBOTT-08P-163-0446703-00

PATIENT
  Sex: Male
  Weight: 122.58 kg

DRUGS (1)
  1. HUMIRA [Suspect]
     Indication: PSORIATIC ARTHROPATHY
     Dosage: 40 MG EVERY SEVEN TO TEN DAYS
     Route: 058
     Dates: start: 20070301, end: 20080407

REACTIONS (4)
  - HEADACHE [None]
  - MALAISE [None]
  - RESPIRATORY TRACT CONGESTION [None]
  - SINUSITIS [None]
